FAERS Safety Report 7298934-6 (Version None)
Quarter: 2011Q1

REPORT INFORMATION
  Report Type: 
  Country: None (occurrence: None)
  Receive Date: 20110217
  Receipt Date: 20110208
  Transmission Date: 20110831
  Serious: Yes (Hospitalization)
  Sender: FDA-Public Use
  Company Number: JP-ROCHE-759795

PATIENT
  Age: 70 Year
  Sex: Male

DRUGS (1)
  1. ACTEMRA [Suspect]
     Dosage: DOSE FORM: INJECTION, DOSAGE UNMENTION
     Route: 041

REACTIONS (3)
  - RASH [None]
  - PRURITUS GENERALISED [None]
  - SURGERY [None]
